FAERS Safety Report 6888670-X (Version None)
Quarter: 2010Q3

REPORT INFORMATION
  Report Type: 
  Country: None (occurrence: None)
  Receive Date: 20100730
  Receipt Date: 20071020
  Transmission Date: 20110219
  Serious: No
  Sender: FDA-Public Use
  Company Number: US-PFIZER INC-2007012171

PATIENT
  Sex: Male
  Weight: 63.5 kg

DRUGS (5)
  1. LIPITOR [Suspect]
     Indication: BLOOD CHOLESTEROL INCREASED
     Dates: start: 20060801
  2. LIPITOR [Suspect]
     Indication: HIGH DENSITY LIPOPROTEIN INCREASED
  3. SUSTIVA [Concomitant]
  4. COMBIVIR [Concomitant]
  5. VIREAD [Concomitant]

REACTIONS (6)
  - BURNING SENSATION [None]
  - CONSTIPATION [None]
  - PAIN IN EXTREMITY [None]
  - PARAESTHESIA [None]
  - SLEEP DISORDER [None]
  - VISION BLURRED [None]
